FAERS Safety Report 7651027-8 (Version None)
Quarter: 2011Q3

REPORT INFORMATION
  Report Type: 
  Country: None (occurrence: None)
  Receive Date: 20110802
  Receipt Date: 20110726
  Transmission Date: 20111222
  Serious: Yes (Hospitalization)
  Sender: FDA-Public Use
  Company Number: US-ABBOTT-11P-163-0842258-00

PATIENT
  Sex: Female
  Weight: 54.48 kg

DRUGS (9)
  1. ASPIRIN [Concomitant]
     Indication: CARDIAC DISORDER
  2. HUMIRA [Suspect]
     Indication: CROHN'S DISEASE
     Route: 058
     Dates: start: 20090725, end: 20110725
  3. ASPIRIN [Concomitant]
     Indication: PROPHYLAXIS
  4. HUMIRA [Suspect]
  5. PRAVASTATIN [Concomitant]
     Indication: CORONARY ARTERY BYPASS
  6. CARVEDIOL [Concomitant]
     Indication: HYPERTENSION
  7. LISINOPRIL [Concomitant]
     Indication: HYPERTENSION
  8. PRAVASTATIN [Concomitant]
     Indication: BLOOD CHOLESTEROL INCREASED
  9. PRAVASTATIN [Concomitant]
     Indication: CARDIAC DISORDER

REACTIONS (9)
  - OEDEMA PERIPHERAL [None]
  - DEVICE OCCLUSION [None]
  - STAPHYLOCOCCAL INFECTION [None]
  - DRUG DOSE OMISSION [None]
  - LARGE INTESTINE PERFORATION [None]
  - PAIN IN EXTREMITY [None]
  - MYOCARDIAL INFARCTION [None]
  - SECRETION DISCHARGE [None]
  - ABDOMINAL PAIN [None]
